FAERS Safety Report 6601084-2 (Version None)
Quarter: 2010Q1

REPORT INFORMATION
  Report Type: 
  Country: None (occurrence: None)
  Receive Date: 20100225
  Receipt Date: 20100223
  Transmission Date: 20100710
  Serious: Yes (Death, Other)
  Sender: FDA-Public Use
  Company Number: PHEH2009US18860

PATIENT
  Sex: Male

DRUGS (1)
  1. EXJADE [Suspect]
     Indication: BLOOD PRODUCT TRANSFUSION
     Dosage: 1500 MG, QD
     Route: 048

REACTIONS (2)
  - LEUKAEMIA [None]
  - PHARYNGEAL OEDEMA [None]
